FAERS Safety Report 5408044-8 (Version None)
Quarter: 2007Q3

REPORT INFORMATION
  Report Type: 
  Country: None (occurrence: None)
  Receive Date: 20070808
  Receipt Date: 20070801
  Transmission Date: 20080115
  Serious: Yes (Other)
  Sender: FDA-Public Use
  Company Number: PHBS2007BR12921

PATIENT
  Age: 52 Year
  Sex: Female
  Weight: 98 kg

DRUGS (5)
  1. DIOVAN AMLO [Suspect]
     Indication: HYPERTENSION
     Dosage: 160/5MG
     Route: 048
  2. DIOVAN AMLO [Suspect]
     Dosage: 80/5MG
     Route: 048
  3. ATENOLOL [Concomitant]
     Dosage: UNK, QD
     Route: 048
  4. BETAHISTINE HYDROCHLORIDE [Concomitant]
     Indication: LABYRINTHITIS
  5. DIURETICS [Concomitant]

REACTIONS (6)
  - ABDOMINAL DISTENSION [None]
  - ABDOMINAL PAIN UPPER [None]
  - HOT FLUSH [None]
  - NAUSEA [None]
  - RENAL PAIN [None]
  - THERAPEUTIC RESPONSE UNEXPECTED [None]
